FAERS Safety Report 9272028 (Version 1)
Quarter: 2013Q2

REPORT INFORMATION
  Report Type: Spontaneous
  Country: US (occurrence: US)
  Receive Date: 20130506
  Receipt Date: 20130506
  Transmission Date: 20140414
  Serious: Yes (Other)
  Sender: FDA-Public Use
  Company Number: US-PFIZER INC-9720975

PATIENT
  Age: 47 Year
  Sex: Male

DRUGS (4)
  1. ZOLOFT [Suspect]
     Dosage: UNK
     Route: 048
  2. XANAX [Suspect]
     Dosage: UNK
     Route: 048
  3. PROZAC [Suspect]
     Dosage: UNK
     Route: 048
  4. ALCOHOL [Concomitant]
     Route: 048

REACTIONS (11)
  - Cognitive disorder [Unknown]
  - Toxicity to various agents [Unknown]
  - Alcohol abuse [Unknown]
  - Adverse drug reaction [Unknown]
  - Impulse-control disorder [Unknown]
  - Affect lability [Unknown]
  - Toxicity to various agents [Unknown]
  - Disinhibition [Unknown]
  - Aggression [Unknown]
  - Thinking abnormal [Unknown]
  - Personality disorder [Unknown]
